FAERS Safety Report 10049058 (Version 2)
Quarter: 2014Q1

REPORT INFORMATION
  Report Type: Report from Study
  Country: TR (occurrence: TR)
  Receive Date: 20140331
  Receipt Date: 20140331
  Transmission Date: 20141002
  Serious: Yes (Other)
  Sender: FDA-Public Use
  Company Number: TR-US-EMD SERONO, INC.-7266880

PATIENT
  Sex: Female
  Weight: 64 kg

DRUGS (5)
  1. REBIF [Suspect]
     Indication: MULTIPLE SCLEROSIS
  2. TAMOL [Suspect]
     Indication: ANALGESIC THERAPY
  3. ATARAX                             /00058401/ [Suspect]
     Indication: ANXIETY
  4. NEURONTIN [Suspect]
     Indication: CONVULSION
  5. SIRDALUD [Suspect]
     Indication: MUSCLE RELAXANT THERAPY

REACTIONS (5)
  - Uterine cancer [Unknown]
  - Palpitations [Recovered/Resolved]
  - Somnolence [Not Recovered/Not Resolved]
  - Menstruation irregular [Not Recovered/Not Resolved]
  - Uterine leiomyoma [Unknown]
